FAERS Safety Report 24098201 (Version 1)
Quarter: 2024Q3

REPORT INFORMATION
  Report Type: Report from Study
  Country: US (occurrence: US)
  Receive Date: 20240716
  Receipt Date: 20240716
  Transmission Date: 20241017
  Serious: Yes (Death, Life-Threatening, Other)
  Sender: PFIZER
  Company Number: US-PFIZER INC-PV202400092131

PATIENT
  Age: 24 Year
  Sex: Male

DRUGS (3)
  1. FENTANYL CITRATE [Suspect]
     Active Substance: FENTANYL CITRATE
     Dosage: UNK
  2. 7-BROMO-5-PHENYL-1,2-DI-HYDRO-3H-1,4-BENZODIAZEPINE-2-ONE [Suspect]
     Active Substance: 7-BROMO-5-PHENYL-1,2-DI-HYDRO-3H-1,4-BENZODIAZEPINE-2-ONE
     Dosage: UNK
  3. BROMAZOLAM [Suspect]
     Active Substance: BROMAZOLAM
     Dosage: UNK

REACTIONS (1)
  - Toxicity to various agents [Fatal]
